FAERS Safety Report 19386613 (Version 2)
Quarter: 2021Q2

REPORT INFORMATION
  Report Type: Spontaneous
  Country: CA (occurrence: CA)
  Receive Date: 20210608
  Receipt Date: 20210621
  Transmission Date: 20210717
  Serious: Yes (Hospitalization)
  Sender: FDA-Public Use
  Company Number: CA-PFIZER INC-2021631882

PATIENT
  Age: 29 Year
  Sex: Female

DRUGS (15)
  1. NAPROXEN. [Suspect]
     Active Substance: NAPROXEN
     Dosage: 500 MG
  2. RANITIDINE. [Concomitant]
     Active Substance: RANITIDINE
     Dosage: 300 MG
  3. METHYLPREDNISOLONE. [Concomitant]
     Active Substance: METHYLPREDNISOLONE
     Indication: ANAPHYLACTIC REACTION
     Dosage: 40 MILLIGRAM
     Route: 042
  4. BACTERIOSTATIC SODIUM CHLORIDE [Suspect]
     Active Substance: SODIUM CHLORIDE
     Indication: UTERINE HYPERTONUS
     Dosage: 1 L BOLUS
     Route: 065
  5. NITROGLYCERINE [Suspect]
     Active Substance: NITROGLYCERIN
     Dosage: 0.4 MG
     Route: 060
  6. SALMETEROL [Concomitant]
     Active Substance: SALMETEROL
     Dosage: UNK
     Route: 065
  7. HYDROMORPHONE HYDROCHLORIDE. [Suspect]
     Active Substance: HYDROMORPHONE HYDROCHLORIDE
     Indication: UTERINE HYPERTONUS
     Dosage: 1 MILLIGRAM
     Route: 058
  8. DIMENHYDRINATE. [Concomitant]
     Active Substance: DIMENHYDRINATE
     Indication: ANAPHYLACTIC REACTION
     Dosage: 50 MILLIGRAM
     Route: 065
  9. CETIRIZINE [Concomitant]
     Active Substance: CETIRIZINE HYDROCHLORIDE
     Dosage: UNK
     Route: 065
  10. EPINEPHRINE. [Suspect]
     Active Substance: EPINEPHRINE
     Dosage: 0.5 MG SECOND DOSE
     Route: 030
  11. ONDANSETRON [Suspect]
     Active Substance: ONDANSETRON
     Indication: UTERINE HYPERTONUS
     Dosage: 40 MILLIGRAM
     Route: 042
  12. RANITIDINE. [Concomitant]
     Active Substance: RANITIDINE
     Indication: ANAPHYLACTIC REACTION
     Dosage: 50 MILLIGRAM
     Route: 042
  13. FLUTICASONE. [Concomitant]
     Active Substance: FLUTICASONE
     Dosage: UNK (HIGHDOSE INHALED)
     Route: 055
  14. EPINEPHRINE. [Suspect]
     Active Substance: EPINEPHRINE
     Indication: ANAPHYLACTIC REACTION
     Dosage: 0.5 MILLIGRAM
     Route: 030
  15. NITROGLYCERINE [Suspect]
     Active Substance: NITROGLYCERIN
     Dosage: 0.8 MG
     Route: 060

REACTIONS (3)
  - Off label use [Unknown]
  - Uterine hypertonus [Recovered/Resolved]
  - Drug ineffective for unapproved indication [Unknown]
